FAERS Safety Report 17296798 (Version 1)
Quarter: 2020Q1

REPORT INFORMATION
  Report Type: Spontaneous
  Country: GB (occurrence: GB)
  Receive Date: 20200122
  Receipt Date: 20200122
  Transmission Date: 20200409
  Serious: Yes (Other)
  Sender: FDA-Public Use
  Company Number: GB-SA-2020SA012715

PATIENT
  Age: 84 Year
  Sex: Female

DRUGS (4)
  1. RAMIPRIL. [Concomitant]
     Active Substance: RAMIPRIL
  2. WARFARIN [Concomitant]
     Active Substance: WARFARIN
  3. PRAVASTATIN. [Concomitant]
     Active Substance: PRAVASTATIN
  4. AFLIBERCEPT [Suspect]
     Active Substance: AFLIBERCEPT
     Indication: RETINAL VEIN OCCLUSION
     Dosage: 0.05 ML
     Route: 031
     Dates: start: 20191128

REACTIONS (1)
  - Cerebellar haemorrhage [Recovered/Resolved]

NARRATIVE: CASE EVENT DATE: 20191205
